FAERS Safety Report 11431918 (Version 4)
Quarter: 2015Q4

REPORT INFORMATION
  Report Type: Spontaneous
  Country: US (occurrence: US)
  Receive Date: 20150828
  Receipt Date: 20151124
  Transmission Date: 20160304
  Serious: Yes (Other)
  Sender: FDA-Public Use
  Company Number: US-PFIZER INC-2015272396

PATIENT
  Age: 44 Year
  Sex: Male

DRUGS (8)
  1. BENZONATATE. [Concomitant]
     Active Substance: BENZONATATE
  2. TYLENOL [Concomitant]
     Active Substance: ACETAMINOPHEN
     Dosage: UNK
  3. ONDANSETRON HCL [Concomitant]
     Active Substance: ONDANSETRON HYDROCHLORIDE
     Dosage: UNK
  4. SUTENT [Suspect]
     Active Substance: SUNITINIB MALATE
     Indication: RENAL NEOPLASM
     Dosage: 50 MG, CYCLIC (DAILY, 28 DAYS, THEN 2 WEEKS OFF)
     Route: 048
  5. XANAX [Concomitant]
     Active Substance: ALPRAZOLAM
     Dosage: UNK
  6. ZITHROMAX [Concomitant]
     Active Substance: AZITHROMYCIN DIHYDRATE
     Dosage: UNK
     Dates: start: 20150813, end: 20150914
  7. ZANTAC [Concomitant]
     Active Substance: RANITIDINE HYDROCHLORIDE
     Dosage: UNK
  8. AMLODIPINE BESYLATE. [Concomitant]
     Active Substance: AMLODIPINE BESYLATE
     Dosage: UNK

REACTIONS (10)
  - Cough [Unknown]
  - Vomiting [Unknown]
  - Dehydration [Unknown]
  - Bronchitis [Unknown]
  - Nausea [Unknown]
  - Arthralgia [Unknown]
  - Blood pressure increased [Unknown]
  - Asthenia [Unknown]
  - Depression [Unknown]
  - Decreased appetite [Unknown]
